FAERS Safety Report 6181253-9 (Version None)
Quarter: 2009Q2

REPORT INFORMATION
  Report Type: 
  Country: None (occurrence: None)
  Receive Date: 20090504
  Receipt Date: 20090422
  Transmission Date: 20091009
  Serious: Yes (Other)
  Sender: FDA-Public Use
  Company Number: GXKR2009CA04568

PATIENT
  Age: 41 Year
  Sex: Female

DRUGS (4)
  1. TRIAMCINOLONE [Suspect]
     Indication: ACNE CYSTIC
     Dosage: INJECTION, NOS
     Dates: start: 20081201
  2. ACCUTANE [Concomitant]
  3. VALTREX [Concomitant]
  4. SPIRONOLACTONE [Concomitant]

REACTIONS (6)
  - CONNECTIVE TISSUE DISORDER [None]
  - DRUG INEFFECTIVE [None]
  - INCORRECT STORAGE OF DRUG [None]
  - PRODUCT QUALITY ISSUE [None]
  - SCAR [None]
  - SKIN DISCOLOURATION [None]
